FAERS Safety Report 6467699-X (Version None)
Quarter: 2009Q4

REPORT INFORMATION
  Report Type: 
  Country: None (occurrence: None)
  Receive Date: 20091202
  Receipt Date: 20091124
  Transmission Date: 20100525
  Serious: Yes (Other)
  Sender: FDA-Public Use
  Company Number: PHHY2009IT40881

PATIENT
  Sex: Female

DRUGS (3)
  1. AREDIA [Suspect]
     Indication: MULTIPLE MYELOMA
     Dosage: 90 MG/10 ML,1 POSOLOGIC UNIT MONTHLY
     Route: 042
     Dates: start: 20020101, end: 20031231
  2. ZOMETA [Suspect]
     Indication: MULTIPLE MYELOMA
     Dosage: 4 MG+5ML, 1 POSOLOGIC UNIT MONTHLY
     Route: 042
     Dates: start: 20030101, end: 20041231
  3. SOLDESAM [Concomitant]

REACTIONS (1)
  - OSTEOMYELITIS [None]
